FAERS Safety Report 7386367-3 (Version None)
Quarter: 2011Q1

REPORT INFORMATION
  Report Type: 
  Country: None (occurrence: None)
  Receive Date: 20110331
  Receipt Date: 20110319
  Transmission Date: 20110831
  Serious: Yes (Hospitalization)
  Sender: FDA-Public Use
  Company Number: PHFR2011GB02041

PATIENT
  Sex: Male

DRUGS (2)
  1. CLOZARIL [Suspect]
     Dosage: 150 MG MORNING + 300 MG NIGHT
     Route: 048
  2. CLOZARIL [Suspect]
     Indication: SCHIZOPHRENIA
     Dosage: 150 MG MORNING + 300 MG NIGHT
     Route: 048
     Dates: start: 20010129

REACTIONS (4)
  - EYE INJURY [None]
  - HEAD INJURY [None]
  - SOMNOLENCE [None]
  - INCORRECT DOSE ADMINISTERED [None]
